FAERS Safety Report 9558412 (Version 1)
Quarter: 2013Q3

REPORT INFORMATION
  Report Type: Report from Study
  Country: BR (occurrence: BR)
  Receive Date: 20130926
  Receipt Date: 20130926
  Transmission Date: 20140515
  Serious: Yes (Other)
  Sender: FDA-Public Use
  Company Number: PHHY2013BR106196

PATIENT
  Sex: Female

DRUGS (3)
  1. GALVUS MET [Suspect]
     Indication: DIABETES MELLITUS
     Dosage: 2 (1000/50MG) BID
  2. METFORMIN [Suspect]
     Dosage: 850 MG, UNK
  3. GLIBENCLAMIDE [Suspect]
     Dosage: 5 MG, UNK

REACTIONS (2)
  - Blood pressure increased [Recovering/Resolving]
  - Dementia [Recovering/Resolving]
